FAERS Safety Report 9624578 (Version 4)
Quarter: 2014Q2

REPORT INFORMATION
  Report Type: Spontaneous
  Country: US (occurrence: US)
  Receive Date: 20131015
  Receipt Date: 20140617
  Transmission Date: 20141212
  Serious: Yes (Death, Hospitalization)
  Sender: FDA-Public Use
  Company Number: US-INCYTE CORPORATION-2013IN002377

PATIENT
  Age: 69 Year
  Sex: Male

DRUGS (1)
  1. JAKAFI [Suspect]
     Indication: MYELOFIBROSIS
     Dosage: 20 MG, BID
     Route: 048
     Dates: start: 20120123

REACTIONS (2)
  - Death [Fatal]
  - Hospitalisation [Unknown]
